FAERS Safety Report 8114832-X (Version None)
Quarter: 2012Q1

REPORT INFORMATION
  Report Type: 
  Country: None (occurrence: None)
  Receive Date: 20120202
  Receipt Date: 20120202
  Transmission Date: 20120608
  Serious: Yes (Life-Threatening, Hospitalization)
  Sender: FDA-Public Use
  Company Number: None

PATIENT
  Age: 85 Year
  Sex: Male
  Weight: 56.6996 kg

DRUGS (1)
  1. MULTI-VITAMINS [Suspect]
     Indication: MACULAR DEGENERATION
     Dosage: ONE TABLET (1/2 REG DOSE) TWICE DAY MOUTH
     Route: 048
     Dates: start: 20071010, end: 20071110

REACTIONS (3)
  - STEVENS-JOHNSON SYNDROME [None]
  - HYPOPHAGIA [None]
  - HALLUCINATION [None]
